FAERS Safety Report 9917191 (Version 2)
Quarter: 2014Q2

REPORT INFORMATION
  Report Type: Report from Study
  Country: US (occurrence: US)
  Receive Date: 20140221
  Receipt Date: 20140428
  Transmission Date: 20141212
  Serious: Yes (Other)
  Sender: FDA-Public Use
  Company Number: US-ABBVIE-14P-163-1201604-00

PATIENT
  Sex: Female
  Weight: 68.1 kg

DRUGS (6)
  1. HUMIRA [Suspect]
     Indication: RHEUMATOID ARTHRITIS
  2. HUMIRA [Suspect]
  3. METHOTREXATE [Suspect]
     Indication: PRODUCT USED FOR UNKNOWN INDICATION
  4. VITAMIN B12 [Concomitant]
     Indication: VITAMIN SUPPLEMENTATION
  5. VITAMIN C [Concomitant]
     Indication: VITAMIN SUPPLEMENTATION
  6. PRAVASTATIN [Concomitant]
     Indication: BLOOD CHOLESTEROL INCREASED

REACTIONS (7)
  - Mobility decreased [Recovering/Resolving]
  - Finger deformity [Recovered/Resolved]
  - Nodule [Recovered/Resolved]
  - Carbuncle [Recovered/Resolved]
  - Nasopharyngitis [Not Recovered/Not Resolved]
  - Alopecia [Recovered/Resolved]
  - Blood calcitonin increased [Recovered/Resolved]
